FAERS Safety Report 22080578 (Version 1)
Quarter: 2023Q1

REPORT INFORMATION
  Report Type: Spontaneous
  Country: US (occurrence: None)
  Receive Date: 20230309
  Receipt Date: 20230309
  Transmission Date: 20230417
  Serious: No
  Sender: FDA-Public Use
  Company Number: None

PATIENT
  Age: 79 Year
  Sex: Male
  Weight: 94.17 kg

DRUGS (23)
  1. SPRYCEL [Suspect]
     Active Substance: DASATINIB
     Indication: Chronic myeloid leukaemia
     Dosage: FREQUENCY : DAILY;?
     Route: 048
  2. ALBUTEROL [Concomitant]
     Active Substance: ALBUTEROL
  3. ALIGN [Concomitant]
     Active Substance: BIFIDOBACTERIUM LONGUM SUBSP. INFANTIS
  4. ASPIRIN [Concomitant]
     Active Substance: ASPIRIN
  5. MINERALS\VITAMINS [Concomitant]
     Active Substance: MINERALS\VITAMINS
  6. CITRUCEL [Concomitant]
     Active Substance: METHYLCELLULOSE (4000 MPA.S)
  7. COENZYME Q10 [Concomitant]
     Active Substance: DIETARY SUPPLEMENT\UBIDECARENONE
  8. EZETMIBE [Concomitant]
  9. GARLIC [Concomitant]
     Active Substance: GARLIC
  10. GLUCOSAMINE [Concomitant]
     Active Substance: GLUCOSAMINE
  11. OCUTITE [Concomitant]
  12. OMEGA-3 ACIDS [Concomitant]
     Active Substance: OMEGA-3 FATTY ACIDS
  13. PRAVASTATIN [Concomitant]
     Active Substance: PRAVASTATIN
  14. STOOL SOFTENER (DOCUSATE) [Concomitant]
     Active Substance: DOCUSATE
  15. SULFACETAMIDE SODIUM EXTER [Concomitant]
  16. TEARS AGAIN [Concomitant]
     Active Substance: POLYVINYL ALCOHOL
  17. TRUE METRIX [Concomitant]
  18. VENTOLIN [Concomitant]
     Active Substance: ALBUTEROL SULFATE
  19. VITAMIN B1 [Concomitant]
     Active Substance: THIAMINE HYDROCHLORIDE
  20. VITAMIN B12 [Concomitant]
     Active Substance: CYANOCOBALAMIN
  21. VITAMINC [Concomitant]
  22. VITAMIN D3 [Concomitant]
     Active Substance: CHOLECALCIFEROL
  23. ZYRTEC [Concomitant]
     Active Substance: CETIRIZINE HYDROCHLORIDE

REACTIONS (1)
  - Platelet count decreased [None]
